FAERS Safety Report 13652752 (Version 1)
Quarter: 2017Q2

REPORT INFORMATION
  Report Type: Spontaneous
  Country: US (occurrence: US)
  Receive Date: 20170614
  Receipt Date: 20170614
  Transmission Date: 20170830
  Serious: No
  Sender: FDA-Public Use
  Company Number: US-ROCHE-1459084

PATIENT
  Sex: Female

DRUGS (2)
  1. XELODA [Suspect]
     Active Substance: CAPECITABINE
     Dosage: 4AM AND 3PM, 14 ON, 7 OFF
     Route: 048
     Dates: start: 20140828
  2. XELODA [Suspect]
     Active Substance: CAPECITABINE
     Indication: PRODUCT USED FOR UNKNOWN INDICATION
     Dosage: 4AM AND 3PM, 14 ON, 7 OFF
     Route: 048
     Dates: start: 20140828

REACTIONS (2)
  - Fatigue [Unknown]
  - Nausea [Not Recovered/Not Resolved]
